FAERS Safety Report 19645097 (Version 1)
Quarter: 2021Q3

REPORT INFORMATION
  Report Type: Spontaneous
  Country: US (occurrence: US)
  Receive Date: 20210802
  Receipt Date: 20210802
  Transmission Date: 20211014
  Serious: No
  Sender: FDA-Public Use
  Company Number: US-KAMADA LIMITED-2020US004612

PATIENT

DRUGS (2)
  1. ERYTHROMYCIN. [Concomitant]
     Active Substance: ERYTHROMYCIN
     Dosage: UNK, 3/WEEK
     Route: 065
  2. GLASSIA [Suspect]
     Active Substance: .ALPHA.1-PROTEINASE INHIBITOR HUMAN
     Indication: ALPHA-1 ANTITRYPSIN DEFICIENCY
     Dosage: 1050 MG, 1/WEEK
     Route: 042

REACTIONS (2)
  - Rash pruritic [Not Recovered/Not Resolved]
  - Dermatitis contact [Not Recovered/Not Resolved]
